FAERS Safety Report 7277456-2 (Version None)
Quarter: 2011Q1

REPORT INFORMATION
  Report Type: 
  Country: None (occurrence: None)
  Receive Date: 20110207
  Receipt Date: 20110125
  Transmission Date: 20110831
  Serious: Yes (Hospitalization)
  Sender: FDA-Public Use
  Company Number: ES-ELI_LILLY_AND_COMPANY-ES201101006160

PATIENT
  Sex: Female
  Weight: 57 kg

DRUGS (12)
  1. FORTEO [Suspect]
     Indication: OSTEOPOROSIS
     Dosage: 20 UG, DAILY (1/D)
     Route: 058
     Dates: start: 20090422, end: 20101220
  2. GABAPENTINA [Concomitant]
     Indication: PAIN
     Dosage: 600 MG, 2/D
     Route: 048
  3. DIGOXIN [Concomitant]
     Indication: ARRHYTHMIA
     Dosage: 25 MG, DAILY (1/D)
     Route: 048
  4. NATECAL D [Concomitant]
     Indication: OSTEOPOROSIS
     Dosage: 2 TABLETS PER DAY
     Route: 048
  5. ZALDIAR [Concomitant]
     Indication: PAIN
     Dosage: 1 PER DAY
     Route: 048
  6. BELMAZOL [Concomitant]
     Indication: HIATUS HERNIA
     Dosage: 20 MG, 2/D
     Route: 048
  7. FORTEO [Suspect]
     Dosage: 20 UG, DAILY (1/D)
     Route: 058
     Dates: start: 20101223
  8. MOTILIUM [Concomitant]
     Indication: FLATULENCE
     Dosage: 10 MG, 2/D
     Route: 048
  9. FUROSEMIDA                         /00032601/ [Concomitant]
     Dosage: 40 MG, DAILY (1/D)
     Route: 048
  10. SIMVASTATIN [Concomitant]
     Indication: HYPERCHOLESTEROLAEMIA
     Dosage: 40 MG, DAILY (1/D)
     Route: 048
  11. SINTROM [Concomitant]
     Dosage: 4 MG, UNKNOWN
     Route: 048
  12. SPIRONOLACTONE [Concomitant]
     Dosage: 25 MG, DAILY (1/D)

REACTIONS (1)
  - ARRHYTHMIA [None]
